FAERS Safety Report 11334327 (Version 3)
Quarter: 2015Q3

REPORT INFORMATION
  Report Type: Report from Study
  Country: US (occurrence: US)
  Receive Date: 20150803
  Receipt Date: 20150819
  Transmission Date: 20151125
  Serious: Yes (Other)
  Sender: FDA-Public Use
  Company Number: PHEH2015US014878

PATIENT
  Age: 39 Year
  Sex: Female

DRUGS (1)
  1. GILENYA [Suspect]
     Active Substance: FINGOLIMOD HYDROCHLORIDE
     Indication: RELAPSING-REMITTING MULTIPLE SCLEROSIS
     Dosage: 0.5 MG, QD
     Route: 048
     Dates: start: 20150728, end: 20150811

REACTIONS (5)
  - Chest pain [Unknown]
  - Swelling [Unknown]
  - Hypertension [Unknown]
  - Dyspnoea exertional [Unknown]
  - Headache [Unknown]

NARRATIVE: CASE EVENT DATE: 20150731
